FAERS Safety Report 6376370-4 (Version None)
Quarter: 2009Q3

REPORT INFORMATION
  Report Type: 
  Country: None (occurrence: None)
  Receive Date: 20090918
  Receipt Date: 20090902
  Transmission Date: 20100115
  Serious: No
  Sender: FDA-Public Use
  Company Number: 20097358

PATIENT
  Age: 39 Year
  Sex: Male

DRUGS (1)
  1. BACLOFEN [Suspect]
     Indication: MUSCLE SPASTICITY
     Dosage: 200 MCG, DAILY, INTRATHECAL
     Route: 037
     Dates: start: 20070320

REACTIONS (3)
  - CONSTIPATION [None]
  - NASOPHARYNGITIS [None]
  - NAUSEA [None]
